FAERS Safety Report 11682490 (Version 2)
Quarter: 2015Q4

REPORT INFORMATION
  Report Type: Spontaneous
  Country: FR (occurrence: FR)
  Receive Date: 20151029
  Receipt Date: 20151113
  Transmission Date: 20160304
  Serious: Yes (Death, Hospitalization)
  Sender: FDA-Public Use
  Company Number: FR-BAYER-2015-453343

PATIENT
  Age: 83 Year
  Sex: Male

DRUGS (2)
  1. CELECOXIB. [Interacting]
     Active Substance: CELECOXIB
     Indication: PRODUCT USED FOR UNKNOWN INDICATION
  2. ACETYLSALICYLIC ACID (} 100 MG) [Suspect]
     Active Substance: ASPIRIN
     Indication: PRODUCT USED FOR UNKNOWN INDICATION
     Dosage: UNK

REACTIONS (8)
  - Gastric ulcer perforation [Fatal]
  - Duodenal ulcer perforation [Fatal]
  - Peptic ulcer [Not Recovered/Not Resolved]
  - Infection [Fatal]
  - Colitis ischaemic [Fatal]
  - Shock haemorrhagic [Fatal]
  - Azotaemia [Not Recovered/Not Resolved]
  - Drug interaction [None]
